FAERS Safety Report 6021537-8 (Version None)
Quarter: 2008Q4

REPORT INFORMATION
  Report Type: 
  Country: None (occurrence: None)
  Receive Date: 20081229
  Receipt Date: 20081226
  Transmission Date: 20090506
  Serious: Yes (Death)
  Sender: FDA-Public Use
  Company Number: CA-BRISTOL-MYERS SQUIBB COMPANY-14434815

PATIENT
  Age: 72 Year
  Sex: Female

DRUGS (9)
  1. IXEMPRA KIT [Suspect]
     Indication: BREAST CANCER METASTATIC
     Dosage: INITIALLY ON 25SEP,OCT18,
     Route: 042
     Dates: start: 20081124, end: 20081124
  2. CLOXACILLIN [Concomitant]
  3. ONDANSETRON [Concomitant]
     Indication: PREMEDICATION
     Dosage: 3 TIMES DAILY FOR 10 DAYS GIVEN
     Route: 042
  4. DEXAMETHASONE [Concomitant]
  5. GABAPENTIN [Concomitant]
  6. MACROBID [Concomitant]
  7. DECADRON [Concomitant]
     Indication: PREMEDICATION
     Route: 042
  8. DIPHENHYDRAMINE HCL [Concomitant]
     Indication: PREMEDICATION
     Route: 042
  9. RANITIDINE [Concomitant]
     Indication: PREMEDICATION
     Route: 042

REACTIONS (2)
  - MALIGNANT NEOPLASM PROGRESSION [None]
  - SEPSIS [None]
